FAERS Safety Report 6032139-1 (Version None)
Quarter: 2009Q1

REPORT INFORMATION
  Report Type: 
  Country: None (occurrence: None)
  Receive Date: 20090108
  Receipt Date: 20081220
  Transmission Date: 20090719
  Serious: Yes (Hospitalization)
  Sender: FDA-Public Use
  Company Number: DE-GENENTECH-275136

PATIENT
  Sex: Male

DRUGS (3)
  1. MABTHERA [Suspect]
     Indication: VASCULITIS CEREBRAL
     Dosage: UNK
     Route: 065
  2. ENDOXAN [Suspect]
     Indication: VASCULITIS CEREBRAL
     Route: 065
  3. IMMUNOSUPPRESSANT NOS [Suspect]
     Indication: VASCULITIS CEREBRAL
     Route: 065

REACTIONS (2)
  - GASTRIC CANCER [None]
  - METASTASES TO LUNG [None]
